FAERS Safety Report 9290016 (Version 1)
Quarter: 2013Q2

REPORT INFORMATION
  Report Type: Spontaneous
  Country: US (occurrence: None)
  Receive Date: 20130514
  Receipt Date: 20130514
  Transmission Date: 20140414
  Serious: Yes (Hospitalization)
  Sender: FDA-Public Use
  Company Number: None

PATIENT
  Age: 29 Year
  Sex: Female

DRUGS (3)
  1. ALDOMET (METHYLDOPA) [Suspect]
     Indication: HYPERTENSION
     Dates: start: 20110307, end: 20110625
  2. PRENATAL VITAMINS [Concomitant]
  3. SYNTHROID [Concomitant]

REACTIONS (5)
  - Drug-induced liver injury [None]
  - Nausea [None]
  - Fatigue [None]
  - Jaundice [None]
  - Hepatic necrosis [None]
